FAERS Safety Report 16647569 (Version 2)
Quarter: 2019Q3

REPORT INFORMATION
  Report Type: Report from Study
  Country: AU (occurrence: AU)
  Receive Date: 20190730
  Receipt Date: 20190809
  Transmission Date: 20191004
  Serious: Yes (Other)
  Sender: FDA-Public Use
  Company Number: AU-GW PHARMA-201906AUGW1751

PATIENT

DRUGS (6)
  1. OZMEP [Concomitant]
     Indication: GASTROOESOPHAGEAL REFLUX DISEASE
     Dosage: 20 MILLIGRAM, BID
     Route: 065
  2. BACLOFEN. [Concomitant]
     Active Substance: BACLOFEN
     Indication: MUSCLE SPASMS
     Dosage: 10 MILLIGRAM, BID
     Route: 065
  3. GABAPENTIN. [Concomitant]
     Active Substance: GABAPENTIN
     Indication: EPILEPSY
     Dosage: 200 MILLIGRAM, QD (2 X 100MG 1815)
     Route: 065
  4. CLONIDINE. [Concomitant]
     Active Substance: CLONIDINE
     Indication: EPILEPSY
     Dosage: 2.5 MILLILITER, BID (1 TAB IN 10ML SYRINGE WITH WATER THEN DISCARD 7.5ML TO GIVE REMAINING 2.5ML @ 0
     Route: 065
  5. DIAZEPAM. [Concomitant]
     Active Substance: DIAZEPAM
     Indication: EPILEPSY
     Dosage: 1 MILLILITER, QD (1ML 0200)
     Route: 065
  6. EPIDIOLEX [Suspect]
     Active Substance: CANNABIDIOL
     Indication: EPILEPSY
     Dosage: 25.64 MG/KG, 700 MILLIGRAM, QD
     Dates: start: 20190322

REACTIONS (2)
  - Irritability [Recovered/Resolved]
  - Feeding disorder [Recovered/Resolved]

NARRATIVE: CASE EVENT DATE: 20190510
